FAERS Safety Report 10268100 (Version 2)
Quarter: 2014Q2

REPORT INFORMATION
  Report Type: Report from Study
  Country: CA (occurrence: CA)
  Receive Date: 20140630
  Receipt Date: 20140630
  Transmission Date: 20141212
  Serious: Yes (Other)
  Sender: FDA-Public Use
  Company Number: CA-SA-2014SA068682

PATIENT
  Age: 23 Year
  Sex: Female

DRUGS (2)
  1. AUBAGIO [Suspect]
     Indication: RELAPSING-REMITTING MULTIPLE SCLEROSIS
     Route: 048
     Dates: start: 20140313, end: 20140515
  2. VITAMIN D [Concomitant]
     Indication: MULTIPLE SCLEROSIS

REACTIONS (2)
  - Abortion [Unknown]
  - Exposure during pregnancy [Unknown]
